FAERS Safety Report 24238508 (Version 1)
Quarter: 2024Q3

REPORT INFORMATION
  Report Type: Spontaneous
  Country: US (occurrence: None)
  Receive Date: 20240820
  Receipt Date: 20240820
  Transmission Date: 20241017
  Serious: No
  Sender: Public
  Company Number: None

PATIENT
  Age: 72 Year
  Sex: Female
  Weight: 72.57 kg

DRUGS (12)
  1. CEFUROXIME AXETIL [Suspect]
     Active Substance: CEFUROXIME AXETIL
     Indication: Sinus disorder
     Dosage: 20 TABS   ORALY
     Dates: start: 20240705, end: 20240714
  2. CEFUROXIME AXETIL [Suspect]
     Active Substance: CEFUROXIME AXETIL
     Indication: Cough
  3. CEFUROXIME AXETIL [Suspect]
     Active Substance: CEFUROXIME AXETIL
     Indication: Rhinorrhoea
  4. CEFUROXIME AXETIL [Suspect]
     Active Substance: CEFUROXIME AXETIL
     Indication: Oropharyngeal pain
  5. PREDNISONE [Suspect]
     Active Substance: PREDNISONE
     Indication: Sinus disorder
     Dosage: 19 TABS  2 TABS  1XDAILY EVERY 12 HR ORALY
  6. PREDNISONE [Suspect]
     Active Substance: PREDNISONE
     Indication: Cough
  7. PREDNISONE [Suspect]
     Active Substance: PREDNISONE
     Indication: Rhinorrhoea
  8. PREDNISONE [Suspect]
     Active Substance: PREDNISONE
     Indication: Oropharyngeal pain
  9. PREDNISONE [Suspect]
     Active Substance: PREDNISONE
     Indication: Productive cough
  10. BENICAR HCT [Concomitant]
     Active Substance: HYDROCHLOROTHIAZIDE\OLMESARTAN MEDOXOMIL
  11. AMLODIPINE BESYLATE [Concomitant]
     Active Substance: AMLODIPINE BESYLATE
  12. VITAMIN WOMEN OVER 50 [Concomitant]

REACTIONS (6)
  - Decreased appetite [None]
  - Vision blurred [None]
  - Mood altered [None]
  - Diarrhoea [None]
  - Abdominal pain upper [None]
  - Diarrhoea [None]
